FAERS Safety Report 6111995-2 (Version None)
Quarter: 2009Q1

REPORT INFORMATION
  Report Type: 
  Country: None (occurrence: None)
  Receive Date: 20090310
  Receipt Date: 20090226
  Transmission Date: 20090719
  Serious: Yes (Hospitalization)
  Sender: FDA-Public Use
  Company Number: 2009AL001210

PATIENT
  Age: 77 Year
  Sex: Male

DRUGS (6)
  1. DICLOFENAC SODIUM [Suspect]
     Indication: BACK INJURY
     Dosage: 12.5 MG;
  2. DIGITOXIN TAB [Concomitant]
  3. HYDERGINE [Concomitant]
  4. MARCUMAR [Concomitant]
  5. OMEC HEXAL [Concomitant]
  6. TRENTAL [Concomitant]

REACTIONS (1)
  - DERMATITIS ALLERGIC [None]
